FAERS Safety Report 9880009 (Version 2)
Quarter: 2014Q1

REPORT INFORMATION
  Report Type: Report from Study
  Country: AR (occurrence: AR)
  Receive Date: 20140207
  Receipt Date: 20140211
  Transmission Date: 20141002
  Serious: Yes (Death)
  Sender: FDA-Public Use
  Company Number: AR-ROCHE-1345155

PATIENT
  Age: 76 Year
  Sex: Male

DRUGS (2)
  1. AVASTIN [Suspect]
     Indication: COLON CANCER
     Route: 065
     Dates: start: 200606
  2. IRINOTECAN [Concomitant]
     Indication: COLON CANCER
     Route: 065
     Dates: start: 200606

REACTIONS (1)
  - Cardiac disorder [Fatal]
